FAERS Safety Report 10433753 (Version 2)
Quarter: 2014Q4

REPORT INFORMATION
  Report Type: Report from Study
  Country: TW (occurrence: TW)
  Receive Date: 20140905
  Receipt Date: 20141027
  Transmission Date: 20150528
  Serious: Yes (Hospitalization)
  Sender: FDA-Public Use
  Company Number: TW-SA-2014SA114666

PATIENT
  Age: 48 Year
  Sex: Male
  Weight: 57 kg

DRUGS (4)
  1. METHYLPREDNISOLONE. [Concomitant]
     Active Substance: METHYLPREDNISOLONE
     Dates: start: 20090224
  2. AMPHOTERICIN B. [Suspect]
     Active Substance: AMPHOTERICIN B
     Indication: INFECTION
     Route: 042
     Dates: start: 20090301, end: 20090322
  3. THYMOGLOBULINE [Suspect]
     Active Substance: LAPINE T-LYMPHOCYTE IMMUNE GLOBULIN
     Indication: APLASTIC ANAEMIA
     Route: 065
     Dates: start: 20090224, end: 20090228
  4. CYCLOSPORIN A [Concomitant]
     Active Substance: CYCLOSPORINE
     Dates: start: 20090224

REACTIONS (5)
  - Bacteraemia [Recovered/Resolved]
  - Hypokalaemia [Recovered/Resolved]
  - Fungal infection [Recovered/Resolved]
  - Overdose [Recovered/Resolved]
  - Febrile neutropenia [Recovered/Resolved]

NARRATIVE: CASE EVENT DATE: 20090224
